FAERS Safety Report 16386064 (Version 1)
Quarter: 2019Q2

REPORT INFORMATION
  Report Type: Spontaneous
  Country: US (occurrence: US)
  Receive Date: 20190603
  Receipt Date: 20190603
  Transmission Date: 20190711
  Serious: No
  Sender: FDA-Public Use
  Company Number: US-ARBOR PHARMACEUTICALS, LLC-US-2018ARB000634

PATIENT

DRUGS (2)
  1. HORIZANT [Suspect]
     Active Substance: GABAPENTIN ENACARBIL
     Indication: PARALYSIS
     Dosage: 600 MG, QD
  2. HORIZANT [Suspect]
     Active Substance: GABAPENTIN ENACARBIL
     Indication: NEUROPATHY PERIPHERAL
     Dosage: 300 MG, QD

REACTIONS (5)
  - Underdose [Unknown]
  - Sleep disorder [Recovering/Resolving]
  - Product use in unapproved indication [Unknown]
  - Headache [Recovered/Resolved]
  - Therapeutic product effect decreased [Unknown]
